FAERS Safety Report 20648982 (Version 1)
Quarter: 2022Q1

REPORT INFORMATION
  Report Type: Spontaneous
  Country: US (occurrence: None)
  Receive Date: 20220329
  Receipt Date: 20220329
  Transmission Date: 20220423
  Serious: Yes (Hospitalization)
  Sender: FDA-Public Use
  Company Number: None

PATIENT
  Age: 57 Year
  Sex: Male

DRUGS (1)
  1. THERABREATH HEALTHY GUMS ORAL RINSE [Suspect]
     Active Substance: CETYLPYRIDINIUM CHLORIDE

REACTIONS (6)
  - Eye pain [None]
  - Eye irritation [None]
  - Eye pain [None]
  - Lacrimation increased [None]
  - Accidental exposure to product [None]
  - Vision blurred [None]

NARRATIVE: CASE EVENT DATE: 20220329
